FAERS Safety Report 19855362 (Version 3)
Quarter: 2022Q1

REPORT INFORMATION
  Report Type: Report from Study
  Country: IE (occurrence: None)
  Receive Date: 20210920
  Receipt Date: 20220209
  Transmission Date: 20220423
  Serious: Yes (Hospitalization)
  Sender: FDA-Public Use
  Company Number: IE-MERCK HEALTHCARE KGAA-9265400

PATIENT
  Age: 75 Year
  Sex: Male

DRUGS (9)
  1. REBIF [Suspect]
     Active Substance: INTERFERON BETA-1A
     Indication: Relapsing-remitting multiple sclerosis
     Dosage: ON 05-MAY-2015 THE PATIENT SWITCHED TO REBISMART
     Route: 058
     Dates: start: 19990824
  2. REBIF [Suspect]
     Active Substance: INTERFERON BETA-1A
     Route: 058
     Dates: start: 20160826
  3. DETRUSITOL [Concomitant]
     Active Substance: TOLTERODINE TARTRATE
     Indication: Micturition urgency
  4. PERINDOPRIL [Concomitant]
     Active Substance: PERINDOPRIL
     Indication: Myocardial ischaemia
  5. DUTASTERIDE\TAMSULOSIN [Concomitant]
     Active Substance: DUTASTERIDE\TAMSULOSIN
     Indication: Micturition urgency
  6. ATORVASTATIN [Concomitant]
     Active Substance: ATORVASTATIN
     Indication: Myocardial ischaemia
  7. LANSOPRAZOLE [Concomitant]
     Active Substance: LANSOPRAZOLE
     Indication: Product used for unknown indication
     Dosage: 50 UNSPECIFIED UNIT
  8. MIRABEGRON [Concomitant]
     Active Substance: MIRABEGRON
     Indication: Micturition urgency
  9. VENLAFAXINE HYDROCHLORIDE [Concomitant]
     Active Substance: VENLAFAXINE HYDROCHLORIDE
     Indication: Depression

REACTIONS (3)
  - Carotid artery occlusion [Recovering/Resolving]
  - Cerebrovascular accident [Not Recovered/Not Resolved]
  - Blindness unilateral [Not Recovered/Not Resolved]

NARRATIVE: CASE EVENT DATE: 20190820
